FAERS Safety Report 13486537 (Version 1)
Quarter: 2017Q2

REPORT INFORMATION
  Report Type: Spontaneous
  Country: US (occurrence: US)
  Receive Date: 20170426
  Receipt Date: 20170426
  Transmission Date: 20170830
  Serious: No
  Sender: FDA-Public Use
  Company Number: US-ASTRAZENECA-2017SE41050

PATIENT
  Age: 543 Month
  Sex: Female
  Weight: 79.4 kg

DRUGS (10)
  1. GLIPIZIDE. [Concomitant]
     Active Substance: GLIPIZIDE
     Indication: TYPE 2 DIABETES MELLITUS
     Route: 048
  2. BYETTA [Suspect]
     Active Substance: EXENATIDE
     Indication: TYPE 2 DIABETES MELLITUS
     Route: 058
  3. LISINOPRIL. [Suspect]
     Active Substance: LISINOPRIL
     Indication: HYPERTENSION
     Route: 048
     Dates: end: 20161230
  4. LOVASTATIN. [Concomitant]
     Active Substance: LOVASTATIN
     Indication: RENAL DISORDER
     Route: 048
  5. OTC RENEW LIFE ULTIMATE FLORA PROBIOTICS [Concomitant]
     Indication: LIVER DISORDER
     Dosage: DAILY
     Route: 048
  6. METFORMIN [Concomitant]
     Active Substance: METFORMIN HYDROCHLORIDE
     Indication: TYPE 2 DIABETES MELLITUS
     Route: 048
  7. BYETTA [Suspect]
     Active Substance: EXENATIDE
     Indication: TYPE 2 DIABETES MELLITUS
     Route: 058
  8. OMEPRAZOLE. [Suspect]
     Active Substance: OMEPRAZOLE
     Indication: DYSPEPSIA
     Route: 048
  9. LISINOPRIL. [Suspect]
     Active Substance: LISINOPRIL
     Indication: HYPERTENSION
     Route: 048
     Dates: start: 20161230
  10. VITAFUSION MULTIVITAMIN [Concomitant]
     Indication: VITAMIN SUPPLEMENTATION

REACTIONS (18)
  - Injection site rash [Unknown]
  - Malaise [Unknown]
  - Dyspepsia [Unknown]
  - Hepatic steatosis [Unknown]
  - Head discomfort [Unknown]
  - Intentional product misuse [Unknown]
  - Blood pressure increased [Unknown]
  - Gastric disorder [Unknown]
  - Blood glucose abnormal [Unknown]
  - Eructation [Unknown]
  - Somnolence [Unknown]
  - Abdominal distension [Unknown]
  - Glycosylated haemoglobin increased [Unknown]
  - Pain [Unknown]
  - Gastritis [Unknown]
  - Liver disorder [Unknown]
  - Feeling abnormal [Unknown]
  - Hepatic enzyme increased [Unknown]

NARRATIVE: CASE EVENT DATE: 201505
